FAERS Safety Report 6213704-5 (Version None)
Quarter: 2009Q2

REPORT INFORMATION
  Report Type: 
  Country: None (occurrence: None)
  Receive Date: 20090603
  Receipt Date: 20090526
  Transmission Date: 20091009
  Serious: Yes (Other)
  Sender: FDA-Public Use
  Company Number: PHHY2009BR17290

PATIENT
  Age: 41 Year
  Sex: Male
  Weight: 90 kg

DRUGS (5)
  1. RITALIN LA [Suspect]
     Indication: ATTENTION DEFICIT/HYPERACTIVITY DISORDER
     Dosage: 20 MG, 1 CAPSULE DAILY
     Route: 048
  2. RITALIN LA [Suspect]
     Dosage: 20 MG, 2 CAPSULES/DAY
     Route: 048
  3. RITALIN LA [Suspect]
     Dosage: 20 MG, 1 CAPSULE DAILY
     Route: 048
     Dates: start: 20090502
  4. RITALIN [Suspect]
     Indication: ATTENTION DEFICIT/HYPERACTIVITY DISORDER
     Dosage: 10 MG, 1 TABLET DAILY
     Route: 048
  5. DEPAKOTE [Concomitant]
     Indication: BIPOLAR DISORDER
     Dosage: 500 MG, 1 TABLET DAILY

REACTIONS (7)
  - AFFECT LABILITY [None]
  - AGGRESSION [None]
  - DRY MOUTH [None]
  - EYE IRRITATION [None]
  - IRRITABILITY [None]
  - SOMNOLENCE [None]
  - TREMOR [None]
